FAERS Safety Report 4393696-4 (Version None)
Quarter: 2004Q3

REPORT INFORMATION
  Report Type: 
  Country: None (occurrence: None)
  Receive Date: 20040709
  Receipt Date: 20040621
  Transmission Date: 20050211
  Serious: Yes (Other)
  Sender: FDA-Public Use
  Company Number: PHEH2004US06762

PATIENT
  Age: 65 Year
  Sex: Female
  Weight: 53 kg

DRUGS (6)
  1. GLEEVEC [Suspect]
     Indication: CHRONIC MYELOID LEUKAEMIA
     Dosage: 400 MG, QD
     Route: 048
     Dates: start: 20031230
  2. INDERAL [Concomitant]
     Indication: HYPERTENSION
     Dosage: 40 MG, TID
     Route: 048
  3. K-DUR 10 [Concomitant]
     Indication: HYPOKALAEMIA
     Dosage: 20 MEQ, QD
     Route: 048
  4. LIPITOR [Concomitant]
     Indication: HYPERCHOLESTEROLAEMIA
     Dosage: 10 MG, QD
     Route: 048
  5. PRINIVIL [Concomitant]
     Indication: HYPERTENSION
     Dosage: 10 MG, QD
     Route: 048
  6. SODIUM BICARBONATE [Concomitant]
     Indication: HYPONATRAEMIA
     Dosage: 1.3 G, BID
     Route: 048

REACTIONS (2)
  - DISCOMFORT [None]
  - NEUROENDOCRINE CARCINOMA OF THE SKIN [None]
